FAERS Safety Report 8252140-7 (Version None)
Quarter: 2012Q2

REPORT INFORMATION
  Report Type: 
  Country: None (occurrence: None)
  Receive Date: 20120402
  Receipt Date: 20110615
  Transmission Date: 20120825
  Serious: No
  Sender: FDA-Public Use
  Company Number: US-ABBOTT-11P-163-0732445-00

PATIENT
  Sex: Male
  Weight: 70.37 kg

DRUGS (1)
  1. ANDROGEL [Suspect]
     Indication: BLOOD TESTOSTERONE DECREASED
     Route: 062
     Dates: start: 20110608, end: 20110615

REACTIONS (7)
  - INSOMNIA [None]
  - FEELING HOT [None]
  - NEGATIVE THOUGHTS [None]
  - RASH ERYTHEMATOUS [None]
  - COLD SWEAT [None]
  - FEELING ABNORMAL [None]
  - SKIN BURNING SENSATION [None]
